FAERS Safety Report 9256254 (Version 1)
Quarter: 2013Q2

REPORT INFORMATION
  Report Type: Spontaneous
  Country: US (occurrence: US)
  Receive Date: 20130425
  Receipt Date: 20130425
  Transmission Date: 20140414
  Serious: No
  Sender: FDA-Public Use
  Company Number: US-AMGEN-USASP2012068361

PATIENT
  Age: 46 Year
  Sex: Female
  Weight: 81.63 kg

DRUGS (2)
  1. NEULASTA [Suspect]
     Indication: WHITE BLOOD CELL COUNT INCREASED
     Dosage: UNK UNK, Q2WK
     Route: 058
     Dates: start: 201011, end: 201012
  2. ANTINEOPLASTIC AGENTS [Concomitant]
     Dosage: UNK

REACTIONS (1)
  - Pain [Recovered/Resolved]
